FAERS Safety Report 19652583 (Version 6)
Quarter: 2022Q2

REPORT INFORMATION
  Report Type: Report from Study
  Country: BR (occurrence: BR)
  Receive Date: 20210803
  Receipt Date: 20220609
  Transmission Date: 20220720
  Serious: Yes (Death, Other)
  Sender: FDA-Public Use
  Company Number: NVSC2021BR172553

PATIENT
  Sex: Female

DRUGS (2)
  1. VOTRIENT [Suspect]
     Active Substance: PAZOPANIB HYDROCHLORIDE
     Indication: Lung neoplasm malignant
     Dosage: 2 DOSAGE FORM, QD
     Route: 065
     Dates: start: 20200514
  2. VOTRIENT [Suspect]
     Active Substance: PAZOPANIB HYDROCHLORIDE
     Dosage: 1 DOSAGE FORM, QD (01 TABLET PER DAY)
     Route: 065
     Dates: end: 20220518

REACTIONS (12)
  - Respiratory failure [Fatal]
  - Neoplasm malignant [Fatal]
  - Lung neoplasm malignant [Fatal]
  - Malignant neoplasm progression [Fatal]
  - Dysentery [Unknown]
  - Renal neoplasm [Unknown]
  - Lung disorder [Unknown]
  - Dysphonia [Unknown]
  - Oropharyngeal pain [Unknown]
  - Vomiting [Unknown]
  - Inappropriate schedule of product administration [Recovered/Resolved]
  - Product availability issue [Unknown]
